FAERS Safety Report 18986026 (Version 1)
Quarter: 2021Q1

REPORT INFORMATION
  Report Type: Report from Study
  Country: GB (occurrence: JP)
  Receive Date: 20210309
  Receipt Date: 20210309
  Transmission Date: 20210420
  Serious: Yes (Other)
  Sender: FDA-Public Use
  Company Number: JP-ASTELLAS-2021US007922

PATIENT
  Age: 81 Year
  Sex: Female

DRUGS (1)
  1. ERLOTINIB [Suspect]
     Active Substance: ERLOTINIB
     Indication: NON-SMALL CELL LUNG CANCER
     Dosage: 93450 MG, UNKNOWN FREQUENCY. SHE RECEIVED THE MOST RECENT DOSE OF ERLOTINIB ON 18/NOV/2020
     Route: 048
     Dates: start: 20160926

REACTIONS (5)
  - Skin lesion [Recovered/Resolved with Sequelae]
  - Pruritus [Recovered/Resolved]
  - Cataract operation [Unknown]
  - Hypertension [Recovered/Resolved]
  - Deafness neurosensory [Recovering/Resolving]

NARRATIVE: CASE EVENT DATE: 20161212
